FAERS Safety Report 8523281-1 (Version None)
Quarter: 2012Q3

REPORT INFORMATION
  Report Type: 
  Country: None (occurrence: None)
  Receive Date: 20120713
  Receipt Date: 20120713
  Transmission Date: 20120928
  Serious: Yes (Other)
  Sender: FDA-Public Use
  Company Number: None

PATIENT
  Age: 42 Year
  Sex: Male
  Weight: 83.4619 kg

DRUGS (1)
  1. AXIRON [Suspect]
     Indication: BLOOD TESTOSTERONE DECREASED
     Dosage: 360 MG ONCE A DAY TRANSDERMAL
     Route: 062
     Dates: start: 20120601, end: 20120713

REACTIONS (2)
  - TESTICULAR PAIN [None]
  - TESTICULAR DISORDER [None]
